FAERS Safety Report 21259048 (Version 3)
Quarter: 2022Q3

REPORT INFORMATION
  Report Type: Spontaneous
  Country: JP (occurrence: None)
  Receive Date: 20220826
  Receipt Date: 20220927
  Transmission Date: 20221027
  Serious: Yes (Other)
  Sender: FDA-Public Use
  Company Number: 2022A295521

PATIENT
  Age: 66 Year
  Sex: Female
  Weight: 73 kg

DRUGS (3)
  1. SYMBICORT [Suspect]
     Active Substance: BUDESONIDE\FORMOTEROL FUMARATE DIHYDRATE
     Indication: Asthma
     Dosage: 30 DOSES, 4 DOSAGE FORM, UNKNOWN FREQUENCY UNKNOWN
     Route: 055
  2. BILASTINE [Concomitant]
     Active Substance: BILASTINE
     Dosage: DOSE UNKNOWN
     Route: 065
  3. MONTELUKAST [Concomitant]
     Active Substance: MONTELUKAST SODIUM
     Dosage: DOSE UNKNOWN
     Route: 065

REACTIONS (2)
  - Metastatic bronchial carcinoma [Unknown]
  - Oropharyngeal discomfort [Unknown]
